FAERS Safety Report 18729046 (Version 1)
Quarter: 2021Q1

REPORT INFORMATION
  Report Type: Spontaneous
  Country: CA (occurrence: CA)
  Receive Date: 20210112
  Receipt Date: 20210112
  Transmission Date: 20210419
  Serious: Yes (Other)
  Sender: FDA-Public Use
  Company Number: CA-ACCORD-213776

PATIENT
  Age: 20 Year
  Sex: Female

DRUGS (15)
  1. DEPO?MEDROL [Concomitant]
     Active Substance: METHYLPREDNISOLONE ACETATE
     Dosage: DOSAGE FORM: SUSPENSION INTRA?ARTICULAR
     Route: 014
  2. INFLIXIMAB [Concomitant]
     Active Substance: INFLIXIMAB
     Dosage: THERAPY DURATION: 365.0
  3. HUMIRA [Concomitant]
     Active Substance: ADALIMUMAB
     Dosage: DOSAGE FORM: SOLUTION SUBCUTANEOUS
     Route: 058
  4. PARACETAMOL [Concomitant]
     Active Substance: ACETAMINOPHEN
     Indication: PAIN
  5. HUMIRA [Concomitant]
     Active Substance: ADALIMUMAB
     Route: 058
  6. ADALIMUMAB [Concomitant]
     Active Substance: ADALIMUMAB
     Dosage: FREQUENCY: 1 EVERY 1 WEEKS
     Route: 058
  7. AMITRIPTYLINE [Concomitant]
     Active Substance: AMITRIPTYLINE
     Dosage: FREQUENCY:  EVERY 1 DAYS
  8. FOLIC ACID. [Concomitant]
     Active Substance: FOLIC ACID
     Dosage: FREQUENCY: 1 EVERY 1 WEEKS
  9. REMICADE [Concomitant]
     Active Substance: INFLIXIMAB
     Dosage: FREQUENCY: 1 EVERY 1 MONTHS, DOSAGE FORM: POWDER FOR SOLUTION INTRAVENOUS
     Route: 042
  10. HYDROXYCHLOROQUINE [Concomitant]
     Active Substance: HYDROXYCHLOROQUINE
  11. MELOXICAM. [Concomitant]
     Active Substance: MELOXICAM
     Dosage: FREQUENCY: 1 EVERY 1 DAYS
     Route: 048
  12. ADVIL [Concomitant]
     Active Substance: IBUPROFEN
     Dosage: FREQUENCY:  AS REQUIRED
  13. ADVIL [Concomitant]
     Active Substance: IBUPROFEN
     Dosage: FREQUENCY:  EVERY 1 DAYS
  14. METHOTREXATE. [Suspect]
     Active Substance: METHOTREXATE
     Indication: JUVENILE IDIOPATHIC ARTHRITIS
     Dosage: FREQUENCY: 1 EVERY 1 WEEKS
     Route: 048
  15. METHOTREXATE. [Suspect]
     Active Substance: METHOTREXATE
     Indication: JUVENILE IDIOPATHIC ARTHRITIS

REACTIONS (21)
  - Jaw disorder [Recovered/Resolved]
  - Pain [Recovered/Resolved]
  - Rheumatoid arthritis [Recovered/Resolved]
  - Therapeutic product effect incomplete [Unknown]
  - Headache [Recovered/Resolved]
  - Neuralgia [Recovered/Resolved]
  - Road traffic accident [Recovered/Resolved]
  - White blood cell count decreased [Recovered/Resolved]
  - Asthenia [Recovered/Resolved]
  - Haemoglobin decreased [Recovered/Resolved]
  - Weight increased [Recovered/Resolved]
  - Depressed mood [Recovered/Resolved]
  - Fatigue [Recovered/Resolved]
  - Haematocrit decreased [Recovered/Resolved]
  - Synovitis [Recovered/Resolved]
  - Concussion [Recovered/Resolved]
  - Drug ineffective [Unknown]
  - Heart rate increased [Recovered/Resolved]
  - Rib fracture [Recovered/Resolved]
  - Tenderness [Recovered/Resolved]
  - Condition aggravated [Recovered/Resolved]
